FAERS Safety Report 7949996-1 (Version None)
Quarter: 2011Q4

REPORT INFORMATION
  Report Type: 
  Country: None (occurrence: None)
  Receive Date: 20111130
  Receipt Date: 20111123
  Transmission Date: 20120403
  Serious: Yes (Other)
  Sender: FDA-Public Use
  Company Number: US-BRISTOL-MYERS SQUIBB COMPANY-16109340

PATIENT
  Age: 19 Year
  Sex: Male

DRUGS (7)
  1. LEXAPRO [Suspect]
     Indication: BIPOLAR DISORDER
     Dosage: STARTED 6 YEARS AGO
  2. TOPAMAX [Suspect]
  3. ABILIFY [Suspect]
     Indication: DEPRESSION
     Dosage: STARTED 6 YEARS AGO: BEFORE 2005
     Dates: end: 20100901
  4. LEXAPRO [Suspect]
     Indication: DEPRESSION
     Dosage: STARTED 6 YEARS AGO
  5. TRAZODONE HCL [Concomitant]
  6. ABILIFY [Suspect]
     Indication: BIPOLAR DISORDER
     Dosage: STARTED 6 YEARS AGO: BEFORE 2005
     Dates: end: 20100901
  7. IMITREX [Concomitant]

REACTIONS (2)
  - SUICIDE ATTEMPT [None]
  - HEPATIC FAILURE [None]
